FAERS Safety Report 9025361 (Version 2)
Quarter: 2013Q1

REPORT INFORMATION
  Report Type: Spontaneous
  Country: US (occurrence: US)
  Receive Date: 20121211
  Receipt Date: 20130308
  Transmission Date: 20140127
  Serious: Yes (Hospitalization, Other)
  Sender: FDA-Public Use
  Company Number: PHEH2012US024277

PATIENT
  Age: 68 Year
  Sex: Male

DRUGS (7)
  1. TASIGNA [Suspect]
     Indication: CHRONIC MYELOID LEUKAEMIA
     Dosage: UNK UKN, BID
     Dates: start: 20120917
  2. ASPIRIN [Concomitant]
  3. LANOXIN [Concomitant]
  4. ZESTRIL [Concomitant]
  5. PRAVACHOL [Concomitant]
  6. FUROSEMIDE [Concomitant]
  7. CORAMINE [Concomitant]

REACTIONS (5)
  - Cerebrovascular accident [Unknown]
  - Presyncope [Unknown]
  - Feeling cold [Unknown]
  - Pallor [Unknown]
  - Loss of consciousness [Unknown]
